FAERS Safety Report 4544043-6 (Version None)
Quarter: 2005Q1

REPORT INFORMATION
  Report Type: 
  Country: None (occurrence: None)
  Receive Date: 20050104
  Receipt Date: 20041119
  Transmission Date: 20050727
  Serious: Yes (Life-Threatening, Hospitalization, Other)
  Sender: FDA-Public Use
  Company Number: US-MERCK-0411USA03403

PATIENT
  Age: 75 Year
  Sex: Male

DRUGS (9)
  1. VIOXX [Suspect]
     Indication: ARTHRITIS
     Route: 048
     Dates: start: 20030101
  2. ALTACE [Concomitant]
     Route: 065
  3. NITROGLYCERIN [Concomitant]
     Route: 065
  4. ALPRAZOLAM [Concomitant]
     Route: 065
  5. ALLOPURINOL [Concomitant]
     Route: 065
  6. TRAZODONE HYDROCHLORIDE [Concomitant]
     Route: 065
  7. PENTOXIFYLLINE [Concomitant]
     Route: 065
  8. ASPIRIN [Concomitant]
     Route: 065
  9. CYMBALTA [Concomitant]
     Route: 065

REACTIONS (1)
  - MYOCARDIAL INFARCTION [None]
